FAERS Safety Report 15792516 (Version 1)
Quarter: 2019Q1

REPORT INFORMATION
  Report Type: Spontaneous
  Country: CN (occurrence: CN)
  Receive Date: 20190107
  Receipt Date: 20190107
  Transmission Date: 20190417
  Serious: Yes (Other)
  Sender: FDA-Public Use
  Company Number: CN-ROCHE-2236570

PATIENT
  Age: 62 Year
  Sex: Male

DRUGS (9)
  1. CALCIUM FOLINATE [Concomitant]
     Active Substance: LEUCOVORIN CALCIUM
     Route: 065
     Dates: start: 201611, end: 201704
  2. BEVACIZUMAB. [Suspect]
     Active Substance: BEVACIZUMAB
     Indication: ADENOCARCINOMA
     Route: 065
     Dates: start: 201410, end: 201608
  3. BEVACIZUMAB. [Suspect]
     Active Substance: BEVACIZUMAB
     Route: 065
     Dates: start: 201611, end: 201712
  4. IRINOTECAN [Concomitant]
     Active Substance: IRINOTECAN
     Indication: ADENOCARCINOMA
     Route: 065
     Dates: start: 201601, end: 201604
  5. IRINOTECAN [Concomitant]
     Active Substance: IRINOTECAN
     Route: 065
     Dates: start: 201611, end: 201704
  6. CALCIUM FOLINATE [Concomitant]
     Active Substance: LEUCOVORIN CALCIUM
     Indication: ADENOCARCINOMA
     Route: 065
     Dates: start: 201601, end: 201604
  7. FLUOROURACIL. [Concomitant]
     Active Substance: FLUOROURACIL
     Indication: ADENOCARCINOMA
     Route: 065
     Dates: start: 201410, end: 201608
  8. FLUOROURACIL. [Concomitant]
     Active Substance: FLUOROURACIL
     Route: 065
     Dates: start: 201611, end: 201712
  9. CAMPTO [Concomitant]
     Active Substance: IRINOTECAN
     Indication: ADENOCARCINOMA
     Route: 065

REACTIONS (3)
  - Hypoaesthesia [Unknown]
  - Bone marrow failure [Unknown]
  - Vomiting [Unknown]
